FAERS Safety Report 24377491 (Version 1)
Quarter: 2024Q3

REPORT INFORMATION
  Report Type: Spontaneous
  Country: BR (occurrence: BR)
  Receive Date: 20240930
  Receipt Date: 20240930
  Transmission Date: 20241016
  Serious: Yes (Other)
  Sender: TEVA
  Company Number: BR-TEVA-VS-3248275

PATIENT
  Age: 32 Year
  Sex: Male

DRUGS (2)
  1. COPAXONE [Suspect]
     Active Substance: GLATIRAMER ACETATE
     Indication: Relapsing-remitting multiple sclerosis
     Dosage: TIME INTERVAL: 0.33333333 WEEKS
     Route: 065
     Dates: start: 2019
  2. DIPROSPAN [Concomitant]
     Active Substance: BETAMETHASONE DIPROPIONATE\BETAMETHASONE SODIUM PHOSPHATE
     Indication: Product used for unknown indication
     Route: 065

REACTIONS (12)
  - Throat tightness [Not Recovered/Not Resolved]
  - Fatigue [Not Recovered/Not Resolved]
  - Injection site fibrosis [Not Recovered/Not Resolved]
  - Wrong technique in product usage process [Not Recovered/Not Resolved]
  - Headache [Not Recovered/Not Resolved]
  - Feeling hot [Not Recovered/Not Resolved]
  - Swelling face [Not Recovered/Not Resolved]
  - Injection site induration [Not Recovered/Not Resolved]
  - Nystagmus [Not Recovered/Not Resolved]
  - Lip disorder [Not Recovered/Not Resolved]
  - Swelling [Not Recovered/Not Resolved]
  - Adverse drug reaction [Not Recovered/Not Resolved]

NARRATIVE: CASE EVENT DATE: 20220601
